FAERS Safety Report 5445073-2 (Version None)
Quarter: 2007Q3

REPORT INFORMATION
  Report Type: 
  Country: None (occurrence: None)
  Receive Date: 20070906
  Receipt Date: 20070829
  Transmission Date: 20080115
  Serious: Yes (Life-Threatening, Hospitalization, Other)
  Sender: FDA-Public Use
  Company Number: US-PURDUE-USA_2007_0028983

PATIENT
  Age: 0 Year
  Sex: Male

DRUGS (1)
  1. OXYCONTIN [Suspect]
     Indication: ARTHRALGIA
     Dosage: UNK MG, UNK
     Route: 048
     Dates: start: 20060101

REACTIONS (9)
  - BURGLARY VICTIM [None]
  - DRUG DEPENDENCE [None]
  - EUPHORIC MOOD [None]
  - FACIAL BONES FRACTURE [None]
  - RIB FRACTURE [None]
  - STUPOR [None]
  - SUBSTANCE ABUSE [None]
  - SUICIDAL IDEATION [None]
  - TOOTH FRACTURE [None]
